FAERS Safety Report 15321184 (Version 15)
Quarter: 2019Q3

REPORT INFORMATION
  Report Type: Spontaneous
  Country: US (occurrence: US)
  Receive Date: 20180827
  Receipt Date: 20190712
  Transmission Date: 20191004
  Serious: Yes (Other)
  Sender: FDA-Public Use
  Company Number: US-SA-2018SA234427

PATIENT
  Age: 50 Year
  Sex: Female

DRUGS (5)
  1. KEVZARA [Suspect]
     Active Substance: SARILUMAB
     Dosage: 200 MG, QOW
     Route: 058
     Dates: start: 201806, end: 201811
  2. KEVZARA [Suspect]
     Active Substance: SARILUMAB
     Dosage: 200 MG, QOW
     Route: 058
  3. KEVZARA [Suspect]
     Active Substance: SARILUMAB
     Indication: RHEUMATOID ARTHRITIS
     Dosage: 200 MG, QOW, INJECTION
     Route: 058
     Dates: start: 201805, end: 2018
  4. KEVZARA [Suspect]
     Active Substance: SARILUMAB
     Dosage: 200 MG, QOW, INJECTION
     Route: 058
     Dates: start: 2018, end: 2018
  5. FOLIC ACID. [Concomitant]
     Active Substance: FOLIC ACID

REACTIONS (19)
  - Pain in extremity [Unknown]
  - Nasopharyngitis [Recovering/Resolving]
  - Rheumatoid arthritis [Not Recovered/Not Resolved]
  - Mucosal discolouration [Unknown]
  - Cough [Unknown]
  - Drug ineffective [Unknown]
  - Weight increased [Unknown]
  - Influenza [Unknown]
  - Product storage error [Unknown]
  - Cystitis noninfective [Unknown]
  - Swelling [Not Recovered/Not Resolved]
  - Asthma [Recovering/Resolving]
  - Urinary tract infection [Unknown]
  - Injection site discolouration [Unknown]
  - Neuropathy peripheral [Unknown]
  - Pain [Unknown]
  - Pain [Not Recovered/Not Resolved]
  - Muscle spasms [Unknown]
  - Product dose omission [Unknown]

NARRATIVE: CASE EVENT DATE: 2018
